FAERS Safety Report 8410718-1 (Version None)
Quarter: 2012Q2

REPORT INFORMATION
  Report Type: 
  Country: None (occurrence: None)
  Receive Date: 20120605
  Receipt Date: 20120524
  Transmission Date: 20120825
  Serious: Yes (Other)
  Sender: FDA-Public Use
  Company Number: JP-ELI_LILLY_AND_COMPANY-JP201205008259

PATIENT
  Sex: Female

DRUGS (8)
  1. LOSARTAN POTASSIUM [Concomitant]
  2. EVISTA [Suspect]
     Dosage: UNK
     Route: 048
  3. MUCOSTA [Concomitant]
  4. CONIEL [Concomitant]
  5. EPADEL                             /01682402/ [Concomitant]
  6. MOHRUS L [Concomitant]
     Route: 062
  7. PARIET                                  /JPN/ [Concomitant]
  8. LIPIDIL [Concomitant]

REACTIONS (1)
  - ANGINA PECTORIS [None]
